FAERS Safety Report 5421189-1 (Version None)
Quarter: 2007Q3

REPORT INFORMATION
  Report Type: 
  Country: None (occurrence: None)
  Receive Date: 20070719
  Receipt Date: 20070418
  Transmission Date: 20080115
  Serious: Yes (Other)
  Sender: FDA-Public Use
  Company Number: HQWYE739123APR07

PATIENT
  Age: 42 Year
  Sex: Female
  Weight: 54.48 kg

DRUGS (4)
  1. ADVIL PM [Suspect]
     Indication: INSOMNIA
     Dosage: 1 CAPLET, ORAL
     Route: 048
     Dates: start: 20070401, end: 20070401
  2. ADVIL PM [Suspect]
     Indication: PAIN IN EXTREMITY
     Dosage: 1 CAPLET, ORAL
     Route: 048
     Dates: start: 20070401, end: 20070401
  3. ADVIL PM [Suspect]
     Indication: INSOMNIA
     Dosage: 1 CAPLET, ORAL
     Route: 048
     Dates: start: 20070417, end: 20070417
  4. ADVIL PM [Suspect]
     Indication: PAIN IN EXTREMITY
     Dosage: 1 CAPLET, ORAL
     Route: 048
     Dates: start: 20070417, end: 20070417

REACTIONS (2)
  - DRUG EFFECT DECREASED [None]
  - FEELING ABNORMAL [None]
